FAERS Safety Report 8289657-5 (Version None)
Quarter: 2012Q2

REPORT INFORMATION
  Report Type: 
  Country: None (occurrence: None)
  Receive Date: 20120417
  Receipt Date: 20120409
  Transmission Date: 20120825
  Serious: Yes (Hospitalization)
  Sender: FDA-Public Use
  Company Number: US-BAYER-201021900NA

PATIENT
  Age: 36 Year
  Sex: Female
  Weight: 86 kg

DRUGS (2)
  1. AZITHROMYCIN [Concomitant]
     Indication: PNEUMONIA
     Dosage: UNK
     Dates: start: 20080501
  2. YAZ [Suspect]
     Indication: MENSTRUAL CYCLE MANAGEMENT
     Dosage: UNK
     Dates: start: 20080401, end: 20080519

REACTIONS (6)
  - PULMONARY EMBOLISM [None]
  - ABDOMINAL PAIN [None]
  - DYSPNOEA [None]
  - PULMONARY INFARCTION [None]
  - NAUSEA [None]
  - CHEST PAIN [None]
